FAERS Safety Report 7482369-7 (Version None)
Quarter: 2011Q2

REPORT INFORMATION
  Report Type: 
  Country: None (occurrence: None)
  Receive Date: 20110516
  Receipt Date: 20110509
  Transmission Date: 20111010
  Serious: No
  Sender: FDA-Public Use
  Company Number: US-PFIZER INC-2011099556

PATIENT
  Sex: Female
  Weight: 63.492 kg

DRUGS (7)
  1. ACETYLSALICYLIC ACID [Concomitant]
     Dosage: UNK
  2. CALCIUM [Concomitant]
     Dosage: UNK
  3. CHANTIX [Suspect]
     Dosage: 0.5 MG, 1X/DAY
     Route: 048
     Dates: start: 20110401, end: 20110401
  4. SYNTHROID [Concomitant]
     Dosage: UNK
  5. COZAAR [Concomitant]
     Dosage: UNK
  6. INSULIN [Concomitant]
     Dosage: UNK
  7. CHANTIX [Suspect]
     Indication: SMOKING CESSATION THERAPY
     Dosage: 1 MG, 2X/DAY
     Route: 048
     Dates: start: 20110401, end: 20110429

REACTIONS (1)
  - VOMITING [None]
